FAERS Safety Report 4413972-6 (Version None)
Quarter: 2004Q3

REPORT INFORMATION
  Report Type: 
  Country: None (occurrence: None)
  Receive Date: 20040802
  Receipt Date: 20040723
  Transmission Date: 20050211
  Serious: Yes (Death)
  Sender: FDA-Public Use
  Company Number: 04-06-0844

PATIENT
  Age: 55 Year
  Sex: Male

DRUGS (5)
  1. FLUOXETINE [Suspect]
     Indication: DEPRESSION
     Dosage: 20-40MG QD ORAL
     Route: 048
  2. LARGACTIL [Concomitant]
  3. AMITRIPTYLINE HCL [Concomitant]
  4. ZOPICLONE [Concomitant]
  5. CHLORPROMAZINE [Concomitant]

REACTIONS (1)
  - COMPLETED SUICIDE [None]
